FAERS Safety Report 16456158 (Version 1)
Quarter: 2019Q2

REPORT INFORMATION
  Report Type: Spontaneous
  Country: US (occurrence: US)
  Receive Date: 20190509
  Receipt Date: 20190509
  Transmission Date: 20190711
  Serious: Yes (Hospitalization, Other)
  Sender: FDA-Public Use
  Company Number: None

PATIENT
  Age: 71 Year
  Sex: Male
  Weight: 62 kg

DRUGS (4)
  1. NANOLIPOSOMAL IRINATECAN [Suspect]
     Active Substance: IRINOTECAN
     Indication: GLIOBLASTOMA
     Route: 042
     Dates: start: 20190412
  2. NANOLIPOSOMAL IRINATECAN [Suspect]
     Active Substance: IRINOTECAN
  3. TEMOZOLOMIDE. [Suspect]
     Active Substance: TEMOZOLOMIDE
  4. TEMOZOLOMIDE. [Suspect]
     Active Substance: TEMOZOLOMIDE
     Indication: GLIOBLASTOMA
     Route: 048
     Dates: start: 20190412

REACTIONS (1)
  - Febrile neutropenia [None]

NARRATIVE: CASE EVENT DATE: 20190503
